FAERS Safety Report 16464878 (Version 4)
Quarter: 2019Q3

REPORT INFORMATION
  Report Type: Spontaneous
  Country: FR (occurrence: FR)
  Receive Date: 20190621
  Receipt Date: 20190717
  Transmission Date: 20191004
  Serious: Yes (Hospitalization)
  Sender: FDA-Public Use
  Company Number: PHHY2019FR142522

PATIENT
  Age: 62 Year
  Sex: Female

DRUGS (9)
  1. TERBUTALINE [Suspect]
     Active Substance: TERBUTALINE
     Indication: WHEEZING
     Dosage: 3 AEROSOLS
     Route: 055
  2. IPRATROPIUM [Suspect]
     Active Substance: IPRATROPIUM
     Indication: ASTHMA
  3. METHYLPREDNISOLONE. [Suspect]
     Active Substance: METHYLPREDNISOLONE
     Indication: DYSPNOEA
  4. TERBUTALINE [Suspect]
     Active Substance: TERBUTALINE
     Indication: DYSPNOEA
  5. METHYLPREDNISOLONE. [Suspect]
     Active Substance: METHYLPREDNISOLONE
     Indication: ASTHMA
  6. TERBUTALINE [Suspect]
     Active Substance: TERBUTALINE
     Indication: ASTHMA
  7. IPRATROPIUM [Suspect]
     Active Substance: IPRATROPIUM
     Indication: WHEEZING
     Dosage: 3 AEROSOLS
     Route: 055
  8. IPRATROPIUM [Suspect]
     Active Substance: IPRATROPIUM
     Indication: DYSPNOEA
  9. METHYLPREDNISOLONE. [Suspect]
     Active Substance: METHYLPREDNISOLONE
     Indication: WHEEZING
     Dosage: 80 MG, UNK
     Route: 042

REACTIONS (4)
  - Product use in unapproved indication [Unknown]
  - Lactic acidosis [Recovering/Resolving]
  - Condition aggravated [Recovering/Resolving]
  - Hyperlactacidaemia [Recovering/Resolving]
